FAERS Safety Report 20159593 (Version 2)
Quarter: 2021Q4

REPORT INFORMATION
  Report Type: Other
  Country: DE (occurrence: DE)
  Receive Date: 20211208
  Receipt Date: 20211224
  Transmission Date: 20220303
  Serious: Yes (Hospitalization, Other)
  Sender: FDA-Public Use
  Company Number: None

PATIENT
  Age: 83 Year
  Sex: Female
  Weight: 69 kg

DRUGS (29)
  1. QUETIAPINE [Suspect]
     Active Substance: QUETIAPINE
     Indication: Depression
     Dosage: 100 MILLIGRAM, QD (0-0-0-1)
     Route: 048
     Dates: end: 20211119
  2. MIRTAZAPINE [Suspect]
     Active Substance: MIRTAZAPINE
     Indication: Depression
     Dosage: 30 MILLIGRAM, QD (0-0-0-2) (FROM NOVEMBER 2021 INCREASED TO 45MG AT NIGHT)
     Route: 048
     Dates: start: 202111
  3. MIRTAZAPINE [Suspect]
     Active Substance: MIRTAZAPINE
     Dosage: 45 MILLIGRAM, QD (AT NIGHT)
     Route: 048
     Dates: start: 20211119
  4. FENTANYL [Suspect]
     Active Substance: FENTANYL
     Indication: Scoliosis
     Dosage: 25 MCG/H, TID (CHANGE EVERY 3 DAYS)
     Route: 062
     Dates: start: 202111
  5. FENTANYL [Suspect]
     Active Substance: FENTANYL
     Dosage: 1 DOSAGE FORM, QD (12.5 ???G / H CHANGE EVERY 3 DAYS)
     Route: 062
     Dates: start: 20211119
  6. CITALOPRAM [Suspect]
     Active Substance: CITALOPRAM HYDROBROMIDE
     Indication: Depression
     Dosage: 20 MILLIGRAM, QD (1-0-0)
     Route: 048
  7. CITALOPRAM [Suspect]
     Active Substance: CITALOPRAM HYDROBROMIDE
     Dosage: 30 MG, QD (1 1/2 )
     Route: 048
     Dates: start: 20211119
  8. FUROSEMIDE [Concomitant]
     Active Substance: FUROSEMIDE
     Indication: Product used for unknown indication
     Dosage: 10 MILLIGRAM, QD (1 / 2-0-0 (IF YOU HAVE EDEMA IN YOUR LEGS, TAKE AN ADDITIONAL 1/2 TABLET))
     Route: 065
  9. ALENDRONIC ACID [Concomitant]
     Active Substance: ALENDRONIC ACID
     Indication: Product used for unknown indication
     Dosage: 70 MILLIGRAM (1X A WEEK ON SATURDAYS)
     Route: 065
  10. CLOPIDOGREL [Concomitant]
     Active Substance: CLOPIDOGREL BISULFATE
     Indication: Coronary artery disease
     Dosage: 37.5 MILLIGRAM, QD (0.5-0-0) (UNTIL MID-JUNE 2022)
     Route: 048
     Dates: start: 202106
  11. CLOPIDOGREL [Concomitant]
     Active Substance: CLOPIDOGREL BISULFATE
     Indication: Coronary arterial stent insertion
  12. PANTOPRAZOLE SODIUM [Concomitant]
     Active Substance: PANTOPRAZOLE SODIUM
     Indication: Product used for unknown indication
     Dosage: 40 MILLIGRAM, QD (2-0-0)
     Route: 065
     Dates: start: 202111
  13. PANTOPRAZOLE SODIUM [Concomitant]
     Active Substance: PANTOPRAZOLE SODIUM
     Dosage: 20 MILLIGRAM, QD DOSE REDUCED
     Route: 065
     Dates: start: 202112
  14. ASPIRIN [Concomitant]
     Active Substance: ASPIRIN
     Indication: Product used for unknown indication
     Dosage: 100 MILLIGRAM, QD (0-1-0)
     Route: 065
  15. BRIMONIDINE [Concomitant]
     Active Substance: BRIMONIDINE TARTRATE
     Indication: Product used for unknown indication
     Dosage: 1 DROP, QD (1-0-1)
     Route: 065
  16. NITROGLYCERIN [Concomitant]
     Active Substance: NITROGLYCERIN
     Indication: Chest discomfort
     Dosage: UNK, PRN
     Route: 065
  17. NITROGLYCERIN [Concomitant]
     Active Substance: NITROGLYCERIN
     Indication: Prophylaxis
  18. AMLODIPINE AND VALSARTAN [Concomitant]
     Active Substance: AMLODIPINE\VALSARTAN
     Indication: Product used for unknown indication
     Dosage: 1 DOSAGE FORM, BID (1-0-1) EVERY 12-HOUR
     Route: 065
  19. Vigantol [Concomitant]
     Indication: Product used for unknown indication
     Dosage: 1 DOSAGE FORM, QD (0-0-1)
     Route: 065
  20. NEBIVOLOL [Concomitant]
     Active Substance: NEBIVOLOL
     Indication: Coronary arterial stent insertion
     Dosage: 1.25 MILLIGRAM, QD (1/4-0-0)
     Route: 065
  21. TIMOLOL MALEATE\TRAVOPROST [Concomitant]
     Active Substance: TIMOLOL MALEATE\TRAVOPROST
     Indication: Product used for unknown indication
     Dosage: 1 DROP, QD (1-0-1) (40 MIKRO/ML + 5 MG/ML ) (BOTH EYES, 5 MIN. AFTER BRIMONIDINE)
     Route: 065
  22. ATORVASTATIN [Concomitant]
     Active Substance: ATORVASTATIN
     Indication: Product used for unknown indication
     Dosage: 40 MILLIGRAM, QD (0-0-1)
     Route: 065
  23. BRINZO VISION [Concomitant]
     Indication: Product used for unknown indication
     Dosage: 1 DROP, BID  (1-0-1)
     Route: 065
  24. IODINE [Concomitant]
     Active Substance: IODINE
     Indication: Product used for unknown indication
     Dosage: 200 MICROGRAM, QD (1-0-0)
     Route: 065
  25. Kalinor [Concomitant]
     Indication: Product used for unknown indication
     Dosage: 600 MILLIGRAM, BID (1-0-1), EVERY 12-HOUR (FROM NOVEMBER 19, 2021 FIRST TABLE SET FROM MORNING TO NO
     Route: 065
     Dates: start: 20211119
  26. POLYETHYLENE GLYCOL 3350 [Concomitant]
     Active Substance: POLYETHYLENE GLYCOL 3350
     Indication: Constipation
     Dosage: UNK, PRN IF NECESSARY
     Route: 065
     Dates: start: 20211115
  27. OEKOLP [Concomitant]
     Indication: Product used for unknown indication
     Dosage: UNK (THE FIRST 3 WEEKS 1 TIME A DAY. FROM 4 WEEKS 2 TIMES A WEEK)
     Route: 065
     Dates: start: 20211123
  28. OEKOLP [Concomitant]
     Dosage: UNK FROM 4 WEEKS 2 TIMES A WEEK)
     Route: 065
  29. Lorazepam nuraxpharm [Concomitant]
     Indication: Anxiety
     Dosage: UNK (1/2 TABLET)
     Route: 065
     Dates: start: 20211119

REACTIONS (15)
  - Cholestasis [Recovering/Resolving]
  - Constipation [Recovering/Resolving]
  - Chills [Not Recovered/Not Resolved]
  - Decreased appetite [Recovering/Resolving]
  - Gait disturbance [Recovering/Resolving]
  - Weight decreased [Recovering/Resolving]
  - Feeling cold [Recovering/Resolving]
  - Hepatocellular injury [Recovering/Resolving]
  - Urinary tract infection [Recovering/Resolving]
  - Hypotonia [Recovering/Resolving]
  - General physical health deterioration [Recovering/Resolving]
  - Blood pressure fluctuation [Recovering/Resolving]
  - Night sweats [Not Recovered/Not Resolved]
  - Dry eye [Recovering/Resolving]
  - Dry mouth [Recovering/Resolving]

NARRATIVE: CASE EVENT DATE: 20210101
